FAERS Safety Report 8244865-4 (Version None)
Quarter: 2012Q1

REPORT INFORMATION
  Report Type: 
  Country: None (occurrence: None)
  Receive Date: 20120329
  Receipt Date: 20110711
  Transmission Date: 20120608
  Serious: No
  Sender: FDA-Public Use
  Company Number: US-MYLANLABS-2011S1014288

PATIENT
  Age: 46 Year
  Sex: Female
  Weight: 99.34 kg

DRUGS (9)
  1. DIAZEPAM [Concomitant]
     Indication: PANIC ATTACK
  2. BACLOFEN [Concomitant]
     Indication: MUSCLE SPASMS
  3. PHENERGAN HCL [Concomitant]
     Indication: NAUSEA
  4. FENTANYL-100 [Suspect]
     Dosage: CHANGES Q. 48 HOURS.
     Route: 062
     Dates: start: 20110501, end: 20110630
  5. FENTANYL-100 [Suspect]
     Indication: BACK PAIN
     Dosage: Q72H
     Route: 062
     Dates: start: 20110630, end: 20110711
  6. ROXICODONE [Concomitant]
     Indication: PAIN
     Dates: start: 20100101
  7. FENTANYL-100 [Suspect]
     Indication: NEURALGIA
     Dosage: Q72H
     Route: 062
     Dates: start: 20110630, end: 20110711
  8. XANAX [Concomitant]
     Indication: PANIC ATTACK
  9. AMBIEN [Concomitant]
     Indication: INSOMNIA

REACTIONS (7)
  - DRUG EFFECT INCREASED [None]
  - DRUG EFFECT DECREASED [None]
  - CONFUSIONAL STATE [None]
  - PAIN [None]
  - SYNCOPE [None]
  - SOMNOLENCE [None]
  - DYSARTHRIA [None]
